FAERS Safety Report 6964458-6 (Version None)
Quarter: 2010Q3

REPORT INFORMATION
  Report Type: 
  Country: None (occurrence: None)
  Receive Date: 20100903
  Receipt Date: 20100825
  Transmission Date: 20110219
  Serious: Yes (Death, Other)
  Sender: FDA-Public Use
  Company Number: US-PFIZER INC-2010096058

PATIENT
  Age: 49 Year
  Sex: Male
  Weight: 78.912 kg

DRUGS (5)
  1. ALPRAZOLAM [Suspect]
     Dosage: UNK
  2. NICOTINE [Suspect]
     Dosage: UNK
  3. METHADONE [Suspect]
     Dosage: UNK
  4. OXYCODONE [Suspect]
     Dosage: UNK
  5. PROPOXYPHENE HCL [Suspect]
     Dosage: UNK

REACTIONS (2)
  - DRUG ABUSE [None]
  - DRUG TOXICITY [None]
